FAERS Safety Report 4524622-2 (Version None)
Quarter: 2004Q4

REPORT INFORMATION
  Report Type: 
  Country: None (occurrence: None)
  Receive Date: 20041117
  Receipt Date: 20040302
  Transmission Date: 20050328
  Serious: Yes (Other)
  Sender: FDA-Public Use
  Company Number: 2004S1000772

PATIENT
  Sex: Female

DRUGS (1)
  1. CLOZAPINE TABLETS [Suspect]
     Dosage: ORAL
     Route: 048

REACTIONS (1)
  - LIVER FUNCTION TEST ABNORMAL [None]
